FAERS Safety Report 24319099 (Version 1)
Quarter: 2024Q3

REPORT INFORMATION
  Report Type: Report from Study
  Country: AR (occurrence: AR)
  Receive Date: 20240913
  Receipt Date: 20240913
  Transmission Date: 20241017
  Serious: Yes (Other)
  Sender: ABBVIE
  Company Number: AR-ABBVIE-5919581

PATIENT
  Age: 57 Year
  Sex: Female

DRUGS (1)
  1. UPADACITINIB [Suspect]
     Active Substance: UPADACITINIB
     Indication: Product used for unknown indication
     Dosage: FORM STRENGTH UNITS:  15 MILLIGRAM
     Route: 048

REACTIONS (13)
  - Cholelithiasis [Unknown]
  - Pain [Unknown]
  - Depression [Unknown]
  - Hepatitis A [Unknown]
  - Panic reaction [Unknown]
  - Faecaloma [Unknown]
  - Hepatitis C [Unknown]
  - Asthenia [Unknown]
  - Hepatitis B [Unknown]
  - Ovarian cyst [Unknown]
  - Decreased appetite [Unknown]
  - Renal disorder [Unknown]
  - Weight decreased [Unknown]

NARRATIVE: CASE EVENT DATE: 20240601
